FAERS Safety Report 5298166-7 (Version None)
Quarter: 2007Q2

REPORT INFORMATION
  Report Type: 
  Country: None (occurrence: None)
  Receive Date: 20070416
  Receipt Date: 20070410
  Transmission Date: 20071010
  Serious: Yes (Hospitalization)
  Sender: FDA-Public Use
  Company Number: GB-PURDUE-GBR_2007_0002895

PATIENT
  Age: 50 Year
  Sex: Female

DRUGS (4)
  1. UNIPHYLLIN CONTINUS TABLETS 200 MG [Suspect]
     Indication: ASTHMA
     Dosage: 200 MG, BID
     Route: 048
     Dates: end: 20070326
  2. MONTELUKAST SODIUM [Concomitant]
     Indication: DRUG USE FOR UNKNOWN INDICATION
     Dosage: 10 MG, DAILY
     Route: 048
  3. SALBUTAMOL [Concomitant]
     Indication: DRUG USE FOR UNKNOWN INDICATION
     Dosage: 5 MG FOUR TIME/DAY AND AS REQ
     Route: 065
  4. ATROVENT [Concomitant]
     Indication: DRUG USE FOR UNKNOWN INDICATION
     Dosage: 500 MCG FOUR TIME/DAY AND AS REQ
     Route: 065

REACTIONS (1)
  - DRUG LEVEL DECREASED [None]
